FAERS Safety Report 19066000 (Version 1)
Quarter: 2021Q1

REPORT INFORMATION
  Report Type: Spontaneous
  Country: FR (occurrence: FR)
  Receive Date: 20210327
  Receipt Date: 20210327
  Transmission Date: 20210420
  Serious: Yes (Congenital Anomaly)
  Sender: FDA-Public Use
  Company Number: FR-TEVA-2021-FR-1894017

PATIENT
  Age: 1 Day
  Sex: Female

DRUGS (3)
  1. VENLAFAXINE [Suspect]
     Active Substance: VENLAFAXINE HYDROCHLORIDE
     Indication: BIPOLAR DISORDER
     Dosage: 37.5 MG
     Route: 064
  2. ETIFOXINE (CHLORHYDRATE D^) [Suspect]
     Active Substance: ETIFOXINE HYDROCHLORIDE
     Indication: BIPOLAR DISORDER
     Dosage: 100 MG
     Route: 064
  3. QUETIAPINE. [Suspect]
     Active Substance: QUETIAPINE
     Indication: BIPOLAR DISORDER
     Dosage: 300 MG
     Route: 064

REACTIONS (4)
  - Apnoea [Recovered/Resolved]
  - Sedation [Recovered/Resolved]
  - Withdrawal syndrome [Recovered/Resolved]
  - Agitation [Recovered/Resolved]

NARRATIVE: CASE EVENT DATE: 20210301
